FAERS Safety Report 10619012 (Version 2)
Quarter: 2014Q4

REPORT INFORMATION
  Report Type: Spontaneous
  Country: TR (occurrence: TR)
  Receive Date: 20141202
  Receipt Date: 20141202
  Transmission Date: 20150529
  Serious: Yes (Other)
  Sender: FDA-Public Use
  Company Number: TR-NOVOPROD-430107

PATIENT
  Sex: Female
  Weight: 2.48 kg

DRUGS (4)
  1. MARINCAP [Concomitant]
     Indication: SUPPLEMENTATION THERAPY
     Dosage: 1X1
     Route: 064
     Dates: start: 201406, end: 20140819
  2. HUMALOG [Concomitant]
     Active Substance: INSULIN LISPRO
     Indication: GESTATIONAL DIABETES
     Dosage: 19 U, QD
     Route: 064
     Dates: start: 201406, end: 20140818
  3. DECAVIT                            /06014801/ [Concomitant]
     Indication: VITAMIN SUPPLEMENTATION
     Dosage: 1X1
     Route: 064
     Dates: start: 201406, end: 20140819
  4. INSULATARD HM PENFILL [Suspect]
     Active Substance: INSULIN NOS
     Indication: GESTATIONAL DIABETES
     Dosage: 16 U, QD
     Route: 064
     Dates: start: 201406, end: 20140818

REACTIONS (3)
  - Jaundice neonatal [Recovered/Resolved]
  - Foetal exposure during pregnancy [Recovered/Resolved]
  - Premature baby [Unknown]

NARRATIVE: CASE EVENT DATE: 201406
